FAERS Safety Report 9224687 (Version 1)
Quarter: 2013Q1

REPORT INFORMATION
  Report Type: Spontaneous
  Country: US (occurrence: None)
  Receive Date: 20120917
  Receipt Date: 20120917
  Transmission Date: 20140127
  Serious: Yes (Other)
  Sender: FDA-Public Use
  Company Number: 2012SP006570

PATIENT
  Age: 20 Year
  Sex: Female
  Weight: 120.57 kg

DRUGS (1)
  1. IMPLANON (68 MG) [Suspect]
     Indication: CONTRACEPTION
     Dosage: SBDE
     Dates: start: 20090507

REACTIONS (2)
  - Medical device complication [None]
  - Weight increased [None]
